FAERS Safety Report 7226545-7 (Version None)
Quarter: 2011Q1

REPORT INFORMATION
  Report Type: 
  Country: None (occurrence: None)
  Receive Date: 20110114
  Receipt Date: 20110106
  Transmission Date: 20110831
  Serious: Yes (Other)
  Sender: FDA-Public Use
  Company Number: US-ASTELLAS-2011US000068

PATIENT

DRUGS (5)
  1. PROGRAF [Suspect]
     Indication: HEART TRANSPLANT
     Dosage: 1.5 MG, BID
     Route: 048
     Dates: start: 19940704
  2. METOPROLOL [Concomitant]
     Indication: BLOOD PRESSURE
     Dosage: 100 MG, BID
     Route: 048
     Dates: start: 20060101
  3. ALLOPURINOL [Concomitant]
     Indication: BLOOD URIC ACID ABNORMAL
     Dosage: 100 MG, UID/QD
     Route: 048
     Dates: start: 20061025
  4. TRICORTAPS [Concomitant]
     Indication: CARDIAC DISORDER
     Dosage: 48 MG, UID/QD
     Route: 048
     Dates: start: 19940704
  5. PRAVASTATIN [Concomitant]
     Indication: CARDIAC DISORDER
     Dosage: 20 MG, UID/QD
     Route: 048
     Dates: start: 19940704

REACTIONS (2)
  - RENAL TRANSPLANT [None]
  - WHITE BLOOD CELL COUNT DECREASED [None]
